FAERS Safety Report 15823769 (Version 1)
Quarter: 2019Q1

REPORT INFORMATION
  Report Type: Spontaneous
  Country: PT (occurrence: PT)
  Receive Date: 20190114
  Receipt Date: 20190114
  Transmission Date: 20190417
  Serious: Yes (Hospitalization)
  Sender: FDA-Public Use
  Company Number: PT-BAUSCH-BL-2019-000846

PATIENT
  Sex: Male

DRUGS (4)
  1. MIODIA [Suspect]
     Active Substance: CYCLOBENZAPRINE
     Indication: BACK PAIN
     Route: 048
  2. LISALGIL [Interacting]
     Active Substance: METAMIZOLE SODIUM
     Indication: BACK PAIN
     Route: 065
  3. PREGABALIN. [Interacting]
     Active Substance: PREGABALIN
     Indication: BACK PAIN
     Route: 065
  4. METOCLOPRAMIDE HYDROCHLORIDE. [Suspect]
     Active Substance: METOCLOPRAMIDE HYDROCHLORIDE
     Indication: BACK PAIN
     Route: 065

REACTIONS (4)
  - Ataxia [Unknown]
  - Dysarthria [Unknown]
  - Dyskinesia [Unknown]
  - Drug interaction [Unknown]
